FAERS Safety Report 16775351 (Version 2)
Quarter: 2019Q3

REPORT INFORMATION
  Report Type: Spontaneous
  Country: NL (occurrence: NL)
  Receive Date: 20190905
  Receipt Date: 20190918
  Transmission Date: 20191005
  Serious: Yes (Death, Other)
  Sender: FDA-Public Use
  Company Number: PHHY2019NL204816

PATIENT
  Age: 17 Year
  Sex: Male

DRUGS (3)
  1. ANTITHYMOCYTE IMMUNOGLOBULIN (RABBIT) [Suspect]
     Active Substance: LAPINE T-LYMPHOCYTE IMMUNE GLOBULIN
     Indication: BONE MARROW CONDITIONING REGIMEN
     Dosage: 3 MG/KG, UNK
     Route: 065
  2. BUSULFAN. [Suspect]
     Active Substance: BUSULFAN
     Indication: BONE MARROW CONDITIONING REGIMEN
     Dosage: AUC 60
     Route: 065
  3. FLUDARABINE [Suspect]
     Active Substance: FLUDARABINE PHOSPHATE
     Indication: BONE MARROW CONDITIONING REGIMEN
     Dosage: 172 MG/M2, UNK
     Route: 065

REACTIONS (6)
  - Hyperbilirubinaemia [Fatal]
  - Renal failure [Recovered/Resolved]
  - Hepatic cirrhosis [Fatal]
  - Hepatic failure [Fatal]
  - Hepatic fibrosis [Fatal]
  - Off label use [Unknown]
